FAERS Safety Report 8621192 (Version 3)
Quarter: 2012Q4

REPORT INFORMATION
  Report Type: 
  Country: US (occurrence: US)
  Receive Date: 20120619
  Receipt Date: 20121016
  Transmission Date: 20130627
  Serious: Yes (Other)
  Sender: FDA-Public Use
  Company Number: US-PFIZER INC-2012143614

PATIENT
  Age: 50 Year
  Sex: Female
  Weight: 53.97 kg

DRUGS (13)
  1. GABAPENTIN [Suspect]
     Indication: INTERVERTEBRAL DISC DEGENERATION
     Dosage: UNK
     Dates: start: 2009, end: 2009
  2. GABAPENTIN [Suspect]
     Indication: NEUROPATHY PERIPHERAL
  3. GABAPENTIN [Suspect]
     Indication: CERVICAL SPINAL STENOSIS
  4. GABAPENTIN [Suspect]
     Indication: LUMBAR SPINAL STENOSIS
  5. GABAPENTIN [Suspect]
     Indication: SPINAL DISORDER
  6. LYRICA [Suspect]
     Indication: INTERVERTEBRAL DISC DEGENERATION
     Dosage: UNK
     Dates: start: 2012
  7. LYRICA [Suspect]
     Dosage: 25 mg, daily
     Dates: start: 2012
  8. LYRICA [Suspect]
     Dosage: 75 mg, daily
  9. CELEBREX [Suspect]
     Indication: NEUROPATHY PERIPHERAL
     Dosage: 50 mg, 3x/day
     Dates: start: 2009, end: 2009
  10. CELEBREX [Suspect]
     Indication: CERVICAL SPINAL STENOSIS
  11. CELEBREX [Suspect]
     Indication: LUMBAR SPINAL STENOSIS
  12. CELEBREX [Suspect]
     Indication: SPINAL DISORDER
  13. CYMBALTA [Concomitant]
     Dosage: UNK

REACTIONS (5)
  - Breast cancer female [Unknown]
  - Blood count abnormal [Unknown]
  - Malaise [Unknown]
  - Drug intolerance [Unknown]
  - Off label use [Unknown]
